FAERS Safety Report 5364803-1 (Version None)
Quarter: 2007Q2

REPORT INFORMATION
  Report Type: 
  Country: None (occurrence: None)
  Receive Date: 20070621
  Receipt Date: 20070618
  Transmission Date: 20071010
  Serious: Yes (Other)
  Sender: FDA-Public Use
  Company Number: PHEH2007US06965

PATIENT
  Age: 67 Year
  Sex: Male

DRUGS (4)
  1. ZOMETA [Suspect]
     Indication: METASTASES TO BONE
     Dosage: 4 MG MONTHLY
     Route: 042
     Dates: start: 20060613, end: 20070307
  2. TAXOTERE [Concomitant]
     Dosage: 150 G EVERY THREE WEEKS
     Dates: start: 20060726, end: 20070131
  3. MITOXANTRONE [Concomitant]
     Dosage: 13 MG, UNK
     Dates: start: 20070222, end: 20070501
  4. PREDNISONE TAB [Concomitant]
     Dosage: 10 MG, QD
     Dates: start: 20070126

REACTIONS (4)
  - BONE DISORDER [None]
  - IMPAIRED HEALING [None]
  - OSTEONECROSIS [None]
  - TOOTH EXTRACTION [None]
